FAERS Safety Report 8115432-8 (Version None)
Quarter: 2012Q1

REPORT INFORMATION
  Report Type: 
  Country: None (occurrence: None)
  Receive Date: 20120206
  Receipt Date: 20120124
  Transmission Date: 20120608
  Serious: Yes (Hospitalization, Disabling)
  Sender: FDA-Public Use
  Company Number: US-ELI_LILLY_AND_COMPANY-US201201007284

PATIENT
  Sex: Female
  Weight: 77.098 kg

DRUGS (3)
  1. CYMBALTA [Suspect]
     Dosage: UNK, UNKNOWN
  2. LOVAZA [Concomitant]
     Dosage: 1 DF, BID
  3. LYRICA [Concomitant]
     Indication: NEUROPATHY PERIPHERAL
     Dosage: 100 MG, TID

REACTIONS (5)
  - MENTAL DISORDER [None]
  - AMNESIA [None]
  - ADVERSE EVENT [None]
  - APHASIA [None]
  - FEELING ABNORMAL [None]
